FAERS Safety Report 7225058-6 (Version None)
Quarter: 2011Q1

REPORT INFORMATION
  Report Type: 
  Country: None (occurrence: None)
  Receive Date: 20110113
  Receipt Date: 20110110
  Transmission Date: 20110831
  Serious: Yes (Other)
  Sender: FDA-Public Use
  Company Number: US-AMGEN-KDL408805

PATIENT

DRUGS (3)
  1. HUMIRA [Concomitant]
  2. ORENCIA [Concomitant]
  3. ENBREL [Suspect]
     Indication: RHEUMATOID ARTHRITIS
     Dosage: 50 MG, QWK
     Route: 058

REACTIONS (3)
  - DRUG INEFFECTIVE [None]
  - PANIC ATTACK [None]
  - ANXIETY [None]
